FAERS Safety Report 4991015-3 (Version None)
Quarter: 2006Q2

REPORT INFORMATION
  Report Type: 
  Country: None (occurrence: None)
  Receive Date: 20060503
  Receipt Date: 20051219
  Transmission Date: 20061013
  Serious: Yes (Hospitalization, Disabling)
  Sender: FDA-Public Use
  Company Number: US-MERCK-0512USA02792

PATIENT
  Age: 64 Year
  Sex: Male
  Weight: 100 kg

DRUGS (11)
  1. VIOXX [Suspect]
     Indication: JOINT SWELLING
     Route: 048
     Dates: start: 20010323, end: 20021129
  2. VIOXX [Suspect]
     Route: 048
     Dates: start: 20010323, end: 20021129
  3. VIOXX [Suspect]
     Indication: ARTHRITIS
     Route: 048
     Dates: start: 20010323, end: 20021129
  4. VIOXX [Suspect]
     Route: 048
     Dates: start: 20010323, end: 20021129
  5. GLUCOTROL XL [Concomitant]
     Route: 065
  6. ACCURETIC [Concomitant]
     Route: 065
  7. PROCARDIA XL [Concomitant]
     Indication: HYPERTENSION
     Route: 065
     Dates: start: 19960901, end: 20010901
  8. LIPITOR [Concomitant]
     Indication: BLOOD CHOLESTEROL INCREASED
     Route: 065
     Dates: start: 20020902
  9. DIOVAN [Concomitant]
     Indication: HYPERTENSION
     Route: 065
     Dates: start: 20010611, end: 20010901
  10. ASPIRIN [Concomitant]
     Route: 065
  11. TOPROL-XL [Concomitant]
     Route: 065
     Dates: start: 20020102

REACTIONS (8)
  - ANGIOPATHY [None]
  - ARTERIAL THROMBOSIS LIMB [None]
  - ARTHRALGIA [None]
  - ARTHROPATHY [None]
  - DEEP VEIN THROMBOSIS [None]
  - DEPRESSION [None]
  - LEG AMPUTATION [None]
  - PERIPHERAL VASCULAR DISORDER [None]
